FAERS Safety Report 5638185-1 (Version None)
Quarter: 2008Q1

REPORT INFORMATION
  Report Type: 
  Country: None (occurrence: None)
  Receive Date: 20080226
  Receipt Date: 20080222
  Transmission Date: 20080703
  Serious: Yes (Death)
  Sender: FDA-Public Use
  Company Number: JP-BRISTOL-MYERS SQUIBB COMPANY-14087282

PATIENT
  Age: 44 Year
  Sex: Female

DRUGS (2)
  1. TAXOL [Suspect]
     Indication: BREAST CANCER
     Route: 041
     Dates: start: 20080212, end: 20080212
  2. XELODA [Concomitant]
     Route: 048
     Dates: start: 20080212, end: 20080215

REACTIONS (1)
  - CARDIAC DISORDER [None]
